FAERS Safety Report 5099016-4 (Version None)
Quarter: 2006Q3

REPORT INFORMATION
  Report Type: 
  Country: None (occurrence: None)
  Receive Date: 20060731
  Receipt Date: 20060505
  Transmission Date: 20061208
  Serious: No
  Sender: FDA-Public Use
  Company Number: 224761

PATIENT
  Age: 60 Year
  Sex: Female
  Weight: 63.9 kg

DRUGS (2)
  1. HERCEPTIN [Suspect]
     Indication: BREAST CANCER
     Dosage: SEE IMAGE
     Route: 042
     Dates: start: 20050815, end: 20060414
  2. ARIMIDEX [Concomitant]

REACTIONS (1)
  - EJECTION FRACTION DECREASED [None]
